FAERS Safety Report 23779291 (Version 2)
Quarter: 2024Q3

REPORT INFORMATION
  Report Type: Spontaneous
  Country: JP (occurrence: JP)
  Receive Date: 20240424
  Receipt Date: 20240912
  Transmission Date: 20241017
  Serious: Yes (Other)
  Sender: NOVARTIS
  Company Number: JP-002147023-NVSC2024JP083610

PATIENT
  Age: 77 Year
  Sex: Female

DRUGS (3)
  1. IMATINIB [Suspect]
     Active Substance: IMATINIB
     Indication: Chronic myeloid leukaemia
     Dosage: UNK
     Route: 065
     Dates: start: 200601, end: 200804
  2. NILOTINIB [Suspect]
     Active Substance: NILOTINIB
     Indication: Blast crisis in myelogenous leukaemia
     Dosage: 400 MG
     Route: 065
     Dates: start: 200906
  3. DASATINIB [Suspect]
     Active Substance: DASATINIB
     Indication: Chronic myeloid leukaemia
     Dosage: 50 MG
     Route: 065
     Dates: start: 200905, end: 2009

REACTIONS (5)
  - Acute myeloid leukaemia [Unknown]
  - Second primary malignancy [Unknown]
  - Asthma [Unknown]
  - Rash [Unknown]
  - Eosinophilia [Unknown]
